FAERS Safety Report 7419298-0 (Version None)
Quarter: 2011Q2

REPORT INFORMATION
  Report Type: 
  Country: None (occurrence: None)
  Receive Date: 20110415
  Receipt Date: 20110412
  Transmission Date: 20111010
  Serious: Yes (Other)
  Sender: FDA-Public Use
  Company Number: JP-ABBOTT-11P-087-0713231-00

PATIENT
  Sex: Male
  Weight: 18 kg

DRUGS (7)
  1. CHLORPHENIRAMINE MALEATE [Concomitant]
     Indication: BRONCHITIS
     Route: 048
     Dates: start: 20110308, end: 20110314
  2. KLACID DRY SYRUP [Suspect]
     Indication: BRONCHITIS
     Route: 048
     Dates: start: 20110308, end: 20110311
  3. LENBRISS [Concomitant]
     Indication: BRONCHITIS
     Route: 048
     Dates: start: 20110308, end: 20110314
  4. AMBROXOL HYDROCHLORIDE [Concomitant]
     Indication: BRONCHITIS
     Route: 048
     Dates: start: 20110308, end: 20110314
  5. CEFDITOREN PIVOXIL [Concomitant]
     Indication: PRODUCT USED FOR UNKNOWN INDICATION
     Dates: start: 20110307
  6. TIPEPIDINE HIBENZATE [Concomitant]
     Indication: BRONCHITIS
     Route: 048
     Dates: start: 20110308, end: 20110314
  7. CARBOCISTEINE [Concomitant]
     Indication: BRONCHITIS
     Route: 048
     Dates: start: 20110308, end: 20110314

REACTIONS (2)
  - CALCULUS URETERIC [None]
  - CHROMATURIA [None]
